FAERS Safety Report 8467289 (Version 14)
Quarter: 2013Q3

REPORT INFORMATION
  Report Type: Report from Study
  Country: JP (occurrence: JP)
  Receive Date: 20120320
  Receipt Date: 20130911
  Transmission Date: 20140515
  Serious: Yes (Hospitalization, Other)
  Sender: FDA-Public Use
  Company Number: JP-BRISTOL-MYERS SQUIBB COMPANY-16458051

PATIENT
  Age: 27 Year
  Sex: Female
  Weight: 73 kg

DRUGS (6)
  1. ABILIFY TABS [Suspect]
     Indication: SCHIZOPHRENIA
     Dosage: 16JAN12,17JAN-18JAN:6MGBID,19JAN-26JAN:9MGBID,27JAN-8FEB:18MGQD,9FEB-21AUG:24MGQD. 3RD PHASE 7MAY12
     Route: 048
     Dates: start: 20120116, end: 20120821
  2. MAGLAX [Concomitant]
     Dosage: TABLETS
     Dates: start: 20100607
  3. MYSLEE [Concomitant]
     Dosage: TABLET
     Dates: start: 20120203
  4. SEPAZON [Concomitant]
     Dosage: TABLETS
     Dates: start: 20120203
  5. GASMOTIN [Concomitant]
     Dosage: TABLETS
     Dates: start: 20120208, end: 20120422
  6. LOXOPROFEN [Concomitant]
     Dosage: TABS
     Dates: start: 20111121

REACTIONS (2)
  - Impulsive behaviour [Recovered/Resolved]
  - Hallucination, auditory [Recovering/Resolving]
